FAERS Safety Report 5186526-4 (Version None)
Quarter: 2006Q4

REPORT INFORMATION
  Report Type: 
  Country: None (occurrence: None)
  Receive Date: 20061213
  Receipt Date: 20061130
  Transmission Date: 20070319
  Serious: Yes (Hospitalization)
  Sender: FDA-Public Use
  Company Number: SPV1-2006-02090

PATIENT
  Age: 21 Year
  Sex: Male

DRUGS (2)
  1. PENTASA [Suspect]
     Dosage: 3000 MG DAILY, ORAL
     Route: 048
     Dates: start: 19960101
  2. FAMOTIDINE [Concomitant]

REACTIONS (1)
  - NEPHRITIS [None]
